FAERS Safety Report 9353921 (Version 2)
Quarter: 2013Q3

REPORT INFORMATION
  Report Type: Spontaneous
  Country: IT (occurrence: IT)
  Receive Date: 20130618
  Receipt Date: 20130710
  Transmission Date: 20140515
  Serious: Yes (Hospitalization)
  Sender: FDA-Public Use
  Company Number: IT-PFIZER INC-2013181369

PATIENT
  Age: 22 Year
  Sex: Female

DRUGS (4)
  1. TILADE [Suspect]
     Indication: ASTHMA
     Dosage: 2 U DAILY
     Route: 055
     Dates: start: 20130403, end: 20130404
  2. FLUSPIRAL [Suspect]
     Indication: ASTHMA
     Dosage: 2 U DAILY
     Route: 055
     Dates: start: 20130403, end: 20130404
  3. PARACETAMOL [Suspect]
     Indication: OROPHARYNGEAL PAIN
     Dosage: UNK
     Route: 048
     Dates: start: 20130404, end: 20130404
  4. LEVOTHYROXINE [Concomitant]
     Dosage: UNK

REACTIONS (3)
  - Erythema [Recovering/Resolving]
  - Pruritus [Recovering/Resolving]
  - Rash papular [Recovering/Resolving]
